FAERS Safety Report 23998593 (Version 4)
Quarter: 2024Q4

REPORT INFORMATION
  Report Type: Report from Study
  Country: DE (occurrence: DE)
  Receive Date: 20240621
  Receipt Date: 20241220
  Transmission Date: 20250115
  Serious: Yes (Hospitalization, Other)
  Sender: BRISTOL-MYERS SQUIBB COMPANY
  Company Number: DE-BRISTOL-MYERS SQUIBB COMPANY-2024-095677

PATIENT
  Age: 53 Year
  Sex: Female
  Weight: 55 kg

DRUGS (1)
  1. ZEPOSIA [Suspect]
     Active Substance: OZANIMOD HYDROCHLORIDE
     Indication: Multiple sclerosis
     Route: 048
     Dates: start: 20220322, end: 20240601

REACTIONS (3)
  - Transitional cell cancer of the renal pelvis and ureter [Recovering/Resolving]
  - Metastases to lymph nodes [Recovering/Resolving]
  - Metastases to adrenals [Unknown]

NARRATIVE: CASE EVENT DATE: 20240501
